FAERS Safety Report 5254119-6 (Version None)
Quarter: 2007Q1

REPORT INFORMATION
  Report Type: 
  Country: None (occurrence: None)
  Receive Date: 20070302
  Receipt Date: 20070216
  Transmission Date: 20070707
  Serious: Yes (Disabling)
  Sender: FDA-Public Use
  Company Number: PHRM2007FR00746

PATIENT
  Age: 58 Year
  Sex: Female
  Weight: 55 kg

DRUGS (1)
  1. GLEEVEC [Suspect]
     Indication: CHRONIC MYELOID LEUKAEMIA
     Dosage: 400 MG PER DAY
     Route: 048
     Dates: start: 20020424

REACTIONS (3)
  - METASTASES TO LIVER [None]
  - METASTASES TO PERITONEUM [None]
  - OVARIAN CANCER METASTATIC [None]
